FAERS Safety Report 8800396 (Version 2)
Quarter: 2013Q1

REPORT INFORMATION
  Report Type: Spontaneous
  Country: US (occurrence: US)
  Receive Date: 20120921
  Receipt Date: 20130115
  Transmission Date: 20140127
  Serious: No
  Sender: FDA-Public Use
  Company Number: US-BIOGENIDEC-2012BI037658

PATIENT
  Age: 64 None
  Sex: Male

DRUGS (3)
  1. AVONEX [Suspect]
     Indication: MULTIPLE SCLEROSIS
     Route: 030
     Dates: start: 20090529
  2. AVONEX [Suspect]
     Indication: MULTIPLE SCLEROSIS
     Route: 030
     Dates: start: 201208
  3. OTC LOTION [Concomitant]
     Indication: DRY SKIN

REACTIONS (4)
  - Local swelling [Not Recovered/Not Resolved]
  - Cellulitis [Unknown]
  - Blister [Not Recovered/Not Resolved]
  - Rash maculo-papular [Not Recovered/Not Resolved]
